FAERS Safety Report 17016237 (Version 1)
Quarter: 2019Q4

REPORT INFORMATION
  Report Type: Spontaneous
  Country: US (occurrence: US)
  Receive Date: 20191108
  Receipt Date: 20191108
  Transmission Date: 20200122
  Serious: Yes (Life-Threatening)
  Sender: FDA-Public Use
  Company Number: None

PATIENT
  Age: 23 Year
  Sex: Female
  Weight: 74.25 kg

DRUGS (1)
  1. PARAGARD T 380A [Suspect]
     Active Substance: COPPER
     Indication: CONTRACEPTION
     Dates: start: 20180120, end: 20191106

REACTIONS (4)
  - Pregnancy with contraceptive device [None]
  - Anaemia [None]
  - Abortion induced [None]
  - Complication of pregnancy [None]

NARRATIVE: CASE EVENT DATE: 20191106
